FAERS Safety Report 6887269-9 (Version None)
Quarter: 2010Q3

REPORT INFORMATION
  Report Type: 
  Country: None (occurrence: None)
  Receive Date: 20100727
  Receipt Date: 20100716
  Transmission Date: 20110219
  Serious: Yes (Death, Hospitalization, Other)
  Sender: FDA-Public Use
  Company Number: MPS1-1000348

PATIENT
  Age: 10 Year
  Sex: Male

DRUGS (1)
  1. ALDURAZYME [Suspect]
     Indication: MUCOPOLYSACCHARIDOSIS I
     Dosage: INTRAVENOUS
     Route: 042

REACTIONS (4)
  - DISEASE PROGRESSION [None]
  - DRUG INEFFECTIVE [None]
  - MUCOPOLYSACCHARIDOSIS IH [None]
  - RESPIRATORY FAILURE [None]
